FAERS Safety Report 6571721-X (Version None)
Quarter: 2010Q1

REPORT INFORMATION
  Report Type: 
  Country: None (occurrence: None)
  Receive Date: 20100205
  Receipt Date: 20100121
  Transmission Date: 20100710
  Serious: Yes (Hospitalization, Other)
  Sender: FDA-Public Use
  Company Number: BO-PFIZER INC-2010003887

PATIENT
  Age: 16 Year
  Sex: Male

DRUGS (1)
  1. GENOTROPIN [Suspect]
     Indication: GROWTH HORMONE DEFICIENCY
     Dosage: UNK
     Dates: start: 20090216, end: 20091201

REACTIONS (4)
  - HEPATIC ENZYME ABNORMAL [None]
  - RHINITIS ALLERGIC [None]
  - SPLENOMEGALY [None]
  - TONSILLITIS [None]
